FAERS Safety Report 11181414 (Version 1)
Quarter: 2015Q2

REPORT INFORMATION
  Report Type: Spontaneous
  Country: US (occurrence: None)
  Receive Date: 20150610
  Receipt Date: 20150610
  Transmission Date: 20150821
  Serious: Yes (Disabling)
  Sender: FDA-Public Use
  Company Number: None

PATIENT
  Age: 61 Year
  Sex: Male
  Weight: 104.33 kg

DRUGS (7)
  1. LAMOTRIGINE. [Concomitant]
     Active Substance: LAMOTRIGINE
  2. CENTRUM SILVER [Concomitant]
     Active Substance: VITAMINS
  3. DULOXETINE [Suspect]
     Active Substance: DULOXETINE
     Indication: DEPRESSION
     Dosage: 1 PILL
     Route: 048
  4. VITAMIN D3 [Concomitant]
     Active Substance: CHOLECALCIFEROL
  5. RANITIDINE [Concomitant]
     Active Substance: RANITIDINE\RANITIDINE HYDROCHLORIDE
  6. DULOXETINE [Suspect]
     Active Substance: DULOXETINE
     Indication: NEUROPATHY PERIPHERAL
     Dosage: 1 PILL
     Route: 048
  7. LISINOPRIL. [Concomitant]
     Active Substance: LISINOPRIL

REACTIONS (12)
  - Fatigue [None]
  - Product quality issue [None]
  - Anxiety [None]
  - Indifference [None]
  - Depression [None]
  - Condition aggravated [None]
  - Sensory disturbance [None]
  - Swelling [None]
  - Product substitution issue [None]
  - Neuropathy peripheral [None]
  - Yawning [None]
  - Irritability [None]

NARRATIVE: CASE EVENT DATE: 20150512
